FAERS Safety Report 4456984-9 (Version None)
Quarter: 2004Q3

REPORT INFORMATION
  Report Type: 
  Country: None (occurrence: None)
  Receive Date: 20040923
  Receipt Date: 20040915
  Transmission Date: 20050211
  Serious: Yes (Hospitalization)
  Sender: FDA-Public Use
  Company Number: FR-BRISTOL-MYERS SQUIBB COMPANY-12705547

PATIENT
  Age: 58 Year
  Sex: Male
  Weight: 87 kg

DRUGS (7)
  1. TAXOL [Suspect]
     Indication: BRONCHIAL CARCINOMA
     Route: 042
     Dates: start: 20040805, end: 20040805
  2. PARAPLATIN [Suspect]
     Indication: BRONCHIAL CARCINOMA
     Route: 042
     Dates: start: 20040805, end: 20040805
  3. RANIPLEX [Concomitant]
     Dates: start: 20040805, end: 20040805
  4. POLARAMINE [Concomitant]
     Dates: start: 20040805, end: 20040805
  5. SOLU-MEDROL [Concomitant]
  6. PRIMPERAN INJ [Concomitant]
     Dates: start: 20040805, end: 20040805
  7. FENOFIBRATE [Concomitant]

REACTIONS (4)
  - COMA [None]
  - HERPES SIMPLEX [None]
  - LYMPHOPENIA [None]
  - STEVENS-JOHNSON SYNDROME [None]
